FAERS Safety Report 9313439 (Version 1)
Quarter: 2013Q2

REPORT INFORMATION
  Report Type: Spontaneous
  Country: CA (occurrence: CA)
  Receive Date: 20130528
  Receipt Date: 20130528
  Transmission Date: 20140414
  Serious: Yes (Death)
  Sender: FDA-Public Use
  Company Number: PHHY2013CA051916

PATIENT
  Age: 66 Year
  Sex: Male

DRUGS (5)
  1. MYFORTIC [Suspect]
     Route: 048
  2. PREDNISONE SANDOZ [Suspect]
  3. SIMULECT [Suspect]
  4. TACROLIMUS SANDOZ [Suspect]
  5. CO-TRIMOXAZOLE [Concomitant]

REACTIONS (3)
  - Respiratory failure [Fatal]
  - Multi-organ failure [Fatal]
  - Pneumocystis jirovecii pneumonia [Fatal]
